FAERS Safety Report 22755394 (Version 5)
Quarter: 2024Q3

REPORT INFORMATION
  Report Type: Spontaneous
  Country: BE (occurrence: BE)
  Receive Date: 20230727
  Receipt Date: 20240827
  Transmission Date: 20241016
  Serious: Yes (Hospitalization, Other)
  Sender: ACCORD
  Company Number: BE-Accord-368959

PATIENT
  Age: 73 Year
  Sex: Male

DRUGS (10)
  1. MYCOPHENOLATE MOFETIL [Suspect]
     Active Substance: MYCOPHENOLATE MOFETIL
     Indication: Colitis ulcerative
     Dosage: 500MG TWICE DAILY PO FOR 18 DAYS
     Route: 048
     Dates: start: 2021
  2. METHYLPREDNISOLONE [Suspect]
     Active Substance: METHYLPREDNISOLONE
     Indication: Colitis ulcerative
     Dosage: 64MG PO FOR 5 DAYS
     Route: 048
     Dates: start: 2021
  3. INFLIXIMAB [Suspect]
     Active Substance: INFLIXIMAB
     Indication: Colitis ulcerative
     Dosage: 5MG/KG IV 2 DOSES
     Route: 042
     Dates: start: 2021
  4. BECLOMETHASONE [Suspect]
     Active Substance: BECLOMETHASONE
     Indication: Steroid therapy
     Dosage: 5MG TWICE A DAY
     Route: 061
     Dates: start: 2021
  5. MYCOPHENOLATE MOFETIL [Suspect]
     Active Substance: MYCOPHENOLATE MOFETIL
     Indication: Colitis
     Dosage: HIGH DOSE??HIGH DOSE
     Route: 048
     Dates: start: 2021
  6. METHYLPREDNISOLONE [Suspect]
     Active Substance: METHYLPREDNISOLONE
     Indication: Colitis ulcerative
     Dosage: 1MG/KG IV?HIGH-DOSE
     Route: 042
     Dates: start: 2021
  7. METHYLPREDNISOLONE [Suspect]
     Active Substance: METHYLPREDNISOLONE
     Indication: Colitis ulcerative
     Dosage: 1.5MG/KG IV?DOSE INCREASED
     Route: 042
     Dates: start: 2021
  8. METHYLPREDNISOLONE [Suspect]
     Active Substance: METHYLPREDNISOLONE
     Indication: Colitis ulcerative
     Dosage: DEGRESSIVE DOSE
     Route: 042
     Dates: start: 2021
  9. BECLOMETHASONE [Suspect]
     Active Substance: BECLOMETHASONE
     Indication: Colitis ulcerative
     Route: 061
     Dates: start: 2021
  10. BECLOMETHASONE [Suspect]
     Active Substance: BECLOMETHASONE
     Indication: Steroid therapy
     Dosage: DEGRESSIVE DOSE
     Route: 061
     Dates: start: 2021

REACTIONS (8)
  - Cytomegalovirus infection reactivation [Recovered/Resolved]
  - Cytomegalovirus mononucleosis [Recovering/Resolving]
  - Drug ineffective [Unknown]
  - Colitis [Recovered/Resolved]
  - Enterococcal infection [Recovering/Resolving]
  - Enterococcal bacteraemia [Recovering/Resolving]
  - Staphylococcal bacteraemia [Recovering/Resolving]
  - Bacterial sepsis [Recovering/Resolving]

NARRATIVE: CASE EVENT DATE: 20210101
